FAERS Safety Report 12650586 (Version 1)
Quarter: 2016Q3

REPORT INFORMATION
  Report Type: Spontaneous
  Country: US (occurrence: US)
  Receive Date: 20160815
  Receipt Date: 20160815
  Transmission Date: 20161109
  Serious: No
  Sender: FDA-Public Use
  Company Number: US-BEH-2016072418

PATIENT
  Sex: Female
  Weight: 86.17 kg

DRUGS (14)
  1. FISH OIL [Concomitant]
     Active Substance: FISH OIL
  2. HIZENTRA [Suspect]
     Active Substance: HUMAN IMMUNOGLOBULIN G
     Dosage: UNK
     Route: 058
  3. EPIPEN [Concomitant]
     Active Substance: EPINEPHRINE
  4. PRAVASTATIN. [Concomitant]
     Active Substance: PRAVASTATIN
  5. TEMAZEPAM. [Concomitant]
     Active Substance: TEMAZEPAM
  6. CARVEDILOL. [Concomitant]
     Active Substance: CARVEDILOL
  7. HIZENTRA [Suspect]
     Active Substance: HUMAN IMMUNOGLOBULIN G
     Dosage: 9 G, QMT
     Route: 058
     Dates: start: 20130425
  8. DIPHENHYDRAMINE. [Concomitant]
     Active Substance: DIPHENHYDRAMINE
  9. AMLODIPINE [Concomitant]
     Active Substance: AMLODIPINE BESYLATE
  10. HIZENTRA [Suspect]
     Active Substance: HUMAN IMMUNOGLOBULIN G
     Indication: IMMUNODEFICIENCY COMMON VARIABLE
     Route: 058
  11. ELIQUIS [Concomitant]
     Active Substance: APIXABAN
  12. LOSARTAN. [Concomitant]
     Active Substance: LOSARTAN
  13. TRAVATAN [Concomitant]
     Active Substance: TRAVOPROST
  14. VITAMINS WITH MINERALS [Concomitant]
     Active Substance: MINERALS\VITAMINS

REACTIONS (2)
  - Dyspnoea [Unknown]
  - Infection [Unknown]
